FAERS Safety Report 8594093 (Version 2)
Quarter: 2013Q3

REPORT INFORMATION
  Report Type: Spontaneous
  Country: US (occurrence: US)
  Receive Date: 20120604
  Receipt Date: 20130802
  Transmission Date: 20140515
  Serious: Yes (Hospitalization)
  Sender: FDA-Public Use
  Company Number: US-B.I. PHARMACEUTICALS,INC./RIDGEFIELD-2012-BP-11532BP

PATIENT
  Age: 72 Year
  Sex: Female

DRUGS (6)
  1. ATROVENT INHALATION SOLUTION [Suspect]
     Indication: CHRONIC OBSTRUCTIVE PULMONARY DISEASE
     Route: 055
     Dates: start: 2009
  2. ATROVENT INHALATION SOLUTION [Suspect]
     Route: 055
     Dates: start: 2005
  3. DILTIAZEM [Concomitant]
     Indication: HYPERTENSION
  4. QVAR [Concomitant]
     Indication: CHRONIC OBSTRUCTIVE PULMONARY DISEASE
     Route: 055
  5. SEREVENT [Concomitant]
     Indication: CHRONIC OBSTRUCTIVE PULMONARY DISEASE
     Route: 055
  6. ZYRTEC [Concomitant]
     Indication: HYPERSENSITIVITY

REACTIONS (3)
  - Hip fracture [Recovered/Resolved]
  - Erythema [Not Recovered/Not Resolved]
  - Fall [Recovered/Resolved]
